FAERS Safety Report 6915512-6 (Version None)
Quarter: 2010Q3

REPORT INFORMATION
  Report Type: 
  Country: None (occurrence: None)
  Receive Date: 20100804
  Receipt Date: 20100721
  Transmission Date: 20110219
  Serious: Yes (Hospitalization)
  Sender: FDA-Public Use
  Company Number: 2010SP002145

PATIENT
  Age: 67 Year
  Sex: Female
  Weight: 59.3 kg

DRUGS (32)
  1. XOPENEX [Suspect]
     Indication: CHRONIC OBSTRUCTIVE PULMONARY DISEASE
     Dosage: Q4H; INHALATION
     Route: 055
     Dates: start: 20100702
  2. LOVASTATIN [Concomitant]
  3. FUROSEMIDE [Concomitant]
  4. FISH OIL [Concomitant]
  5. COD LIVER OIL [Concomitant]
  6. PREDNISONE [Concomitant]
  7. RIZATRIPTAN BENZOATE [Concomitant]
  8. LIDODERM [Concomitant]
  9. SPIRIVA [Concomitant]
  10. VITAMIN D [Concomitant]
  11. ADVAIR DISKUS 100/50 [Concomitant]
  12. ACIPHEX [Concomitant]
  13. LYRICA [Concomitant]
  14. HYDROCHLOROTHIAZIDE [Concomitant]
  15. FOSAMAX [Concomitant]
  16. FIBRE, DIETARY [Concomitant]
  17. MULTIVITAMINS AND IRON [Concomitant]
  18. MINERAL TAB [Concomitant]
  19. AMITRIPTYLINE HYDROCHLORIDE [Concomitant]
  20. TRAZODONE HCL [Concomitant]
  21. ACETAMINOPHEN AND HYDROCODONE BITARTRATE [Concomitant]
  22. DICLOFENAC SODIUM [Concomitant]
  23. POLYETHYLENE GLYCOL [Concomitant]
  24. PULMICORT [Concomitant]
  25. TUMS [Concomitant]
  26. POTASSIUM GLUCONATE TAB [Concomitant]
  27. ESTRACE [Concomitant]
  28. NEXIUM [Concomitant]
  29. ACETAMINOPHAN W/OXYCODONE [Concomitant]
  30. POTASSIUM CHLORIDE [Concomitant]
  31. AVELOX [Concomitant]
  32. SEPTRA [Concomitant]

REACTIONS (9)
  - BRONCHITIS [None]
  - CARDIOMEGALY [None]
  - DECUBITUS ULCER [None]
  - DRUG INEFFECTIVE [None]
  - EMPHYSEMA [None]
  - HYPOKALAEMIA [None]
  - HYPONATRAEMIA [None]
  - SINUS TACHYCARDIA [None]
  - SPINAL CORD COMPRESSION [None]
